FAERS Safety Report 22226019 (Version 1)
Quarter: 2023Q2

REPORT INFORMATION
  Report Type: Spontaneous
  Country: US (occurrence: US)
  Receive Date: 20230419
  Receipt Date: 20230419
  Transmission Date: 20230722
  Serious: No
  Sender: FDA-Public Use
  Company Number: US-BEIGENE USA INC-BGN-2023-003161

PATIENT

DRUGS (1)
  1. BRUKINSA [Suspect]
     Active Substance: ZANUBRUTINIB
     Indication: Waldenstrom^s macroglobulinaemia
     Dosage: 2 CAPSULES, BID
     Route: 048
     Dates: start: 202210

REACTIONS (1)
  - Hypersensitivity [Unknown]
